FAERS Safety Report 24987651 (Version 2)
Quarter: 2025Q1

REPORT INFORMATION
  Report Type: Spontaneous
  Country: US (occurrence: US)
  Receive Date: 20250219
  Receipt Date: 20250228
  Transmission Date: 20250409
  Serious: No
  Sender: ABBVIE
  Company Number: US-ABBVIE-6139223

PATIENT
  Sex: Female

DRUGS (1)
  1. HUMIRA [Suspect]
     Active Substance: ADALIMUMAB
     Indication: Product used for unknown indication
     Route: 058
     Dates: start: 2015, end: 2017

REACTIONS (4)
  - Injection site pain [Unknown]
  - Device issue [Not Recovered/Not Resolved]
  - Drug hypersensitivity [Unknown]
  - Drug specific antibody present [Unknown]
